FAERS Safety Report 7399642-3 (Version None)
Quarter: 2011Q2

REPORT INFORMATION
  Report Type: 
  Country: None (occurrence: None)
  Receive Date: 20110407
  Receipt Date: 20100730
  Transmission Date: 20111010
  Serious: No
  Sender: FDA-Public Use
  Company Number: US-KINGPHARMUSA00001-K201000950

PATIENT
  Age: 30 Year
  Sex: Female

DRUGS (3)
  1. SKELAXIN [Suspect]
     Indication: TENSION HEADACHE
  2. ANTACID TAB [Concomitant]
     Indication: GASTROINTESTINAL DISORDER
     Dosage: UNK
  3. SKELAXIN [Suspect]
     Indication: MIGRAINE
     Dosage: 800 MG, UNK
     Route: 048
     Dates: start: 20100729

REACTIONS (2)
  - FATIGUE [None]
  - PAROSMIA [None]
